FAERS Safety Report 7263963-5 (Version None)
Quarter: 2011Q1

REPORT INFORMATION
  Report Type: 
  Country: None (occurrence: None)
  Receive Date: 20110130
  Receipt Date: 20101028
  Transmission Date: 20110831
  Serious: Yes (Other)
  Sender: FDA-Public Use
  Company Number: US-ABBOTT-10P-163-0682579-00

PATIENT
  Age: 42 Year
  Sex: Female

DRUGS (7)
  1. LORECT [Concomitant]
     Indication: BREAKTHROUGH PAIN
     Dosage: 10/650, AS NEEDED
  2. COREG [Concomitant]
     Indication: CHEST PAIN
  3. HALCION [Concomitant]
     Indication: INSOMNIA
  4. HUMIRA [Suspect]
     Indication: RHEUMATOID ARTHRITIS
     Dates: start: 20100818
  5. COREG [Concomitant]
     Indication: DYSPNOEA
  6. ATIVAN [Concomitant]
     Indication: ANXIETY
  7. ESTRADIOL PATCH [Concomitant]
     Indication: HORMONE REPLACEMENT THERAPY

REACTIONS (4)
  - RHEUMATOID ARTHRITIS [None]
  - DEVICE MALFUNCTION [None]
  - CHEST PAIN [None]
  - OOPHORECTOMY BILATERAL [None]
